FAERS Safety Report 5583883-1 (Version None)
Quarter: 2008Q1

REPORT INFORMATION
  Report Type: 
  Country: None (occurrence: None)
  Receive Date: 20080108
  Receipt Date: 20071226
  Transmission Date: 20080703
  Serious: Yes (Death)
  Sender: FDA-Public Use
  Company Number: NL-TYCO HEALTHCARE/MALLINCKRODT-T200701602

PATIENT

DRUGS (6)
  1. LIQUID BAROSPERSE [Suspect]
     Indication: BARIUM ENEMA
     Dosage: UNK, SINGLE
     Route: 054
  2. COLECALCIFEROL [Concomitant]
  3. HYDROCHLOROTHIAZIDE [Concomitant]
  4. GLYBURIDE [Concomitant]
  5. PROPRANOLOL [Concomitant]
  6. TAMOXIFEN CITRATE [Concomitant]

REACTIONS (3)
  - ANAPHYLACTIC REACTION [None]
  - RESPIRATORY ARREST [None]
  - SHOCK [None]
